FAERS Safety Report 6140683-1 (Version None)
Quarter: 2009Q2

REPORT INFORMATION
  Report Type: 
  Country: None (occurrence: None)
  Receive Date: 20090402
  Receipt Date: 20090325
  Transmission Date: 20091009
  Serious: Yes (Hospitalization)
  Sender: FDA-Public Use
  Company Number: US-BIOGENIDEC-2009BI001245

PATIENT
  Age: 35 Year
  Sex: Female
  Weight: 44 kg

DRUGS (1)
  1. TYSABRI [Suspect]
     Indication: MULTIPLE SCLEROSIS
     Route: 042
     Dates: start: 20080402

REACTIONS (12)
  - BIPOLAR I DISORDER [None]
  - CERVICITIS [None]
  - DEPRESSION [None]
  - DRUG INEFFECTIVE [None]
  - HEMIPARESIS [None]
  - HYSTERECTOMY [None]
  - INFLUENZA [None]
  - IRRITABILITY [None]
  - OLIGOMENORRHOEA [None]
  - SUTURE RELATED COMPLICATION [None]
  - UTERINE INFECTION [None]
  - WEIGHT DECREASED [None]
